FAERS Safety Report 13803157 (Version 2)
Quarter: 2017Q3

REPORT INFORMATION
  Report Type: Spontaneous
  Country: US (occurrence: US)
  Receive Date: 20170728
  Receipt Date: 20170802
  Transmission Date: 20171127
  Serious: No
  Sender: FDA-Public Use
  Company Number: PHEH2017US022974

PATIENT
  Sex: Female

DRUGS (2)
  1. BETIMOL [Suspect]
     Active Substance: TIMOLOL
     Indication: PRODUCT USED FOR UNKNOWN INDICATION
     Route: 047
  2. LATANOPROST. [Suspect]
     Active Substance: LATANOPROST
     Indication: PRODUCT USED FOR UNKNOWN INDICATION
     Dosage: 1 GTT, (AS DIRECTED)
     Route: 047

REACTIONS (2)
  - Photophobia [Recovered/Resolved]
  - Eye pain [Recovered/Resolved]
